FAERS Safety Report 20081836 (Version 2)
Quarter: 2021Q4

REPORT INFORMATION
  Report Type: Spontaneous
  Country: DE (occurrence: DE)
  Receive Date: 20211117
  Receipt Date: 20211122
  Transmission Date: 20220304
  Serious: Yes (Hospitalization, Other)
  Sender: FDA-Public Use
  Company Number: DE-ADRED-07028-01

PATIENT
  Age: 80 Year
  Sex: Female

DRUGS (14)
  1. RISPERIDONE [Suspect]
     Active Substance: RISPERIDONE
     Indication: Product used for unknown indication
     Dosage: 0.5 MILLIGRAM, TID (0.5 MG, 1-1-1-0)
  2. PHENPROCOUMON [Concomitant]
     Active Substance: PHENPROCOUMON
     Dosage: UNK (SCHEMA)
  3. TORSEMIDE [Concomitant]
     Active Substance: TORSEMIDE
     Dosage: 5 MILLIGRAM, BID (5 MG, 1-1-0-0)
  4. BENSERAZIDE\LEVODOPA [Concomitant]
     Active Substance: BENSERAZIDE\LEVODOPA
     Dosage: UNK (12.5/50 MG, 2-2-1-0)
  5. VENLAFAXINE [Concomitant]
     Active Substance: VENLAFAXINE HYDROCHLORIDE
     Dosage: 150 MILLIGRAM, QD (150 MG, 1-0-0-0)
  6. DEXPANTHENOL [Concomitant]
     Active Substance: DEXPANTHENOL
     Dosage: UNK (BEDARF)
  7. LACTULOSE [Concomitant]
     Active Substance: LACTULOSE
     Dosage: UNK (1 MB, 1-0-1-0)
  8. DIGITOXIN [Concomitant]
     Active Substance: DIGITOXIN
     Dosage: 100 MILLIGRAM (100 MG, SCHEMA)
  9. LERCANIDIPINE [Concomitant]
     Active Substance: LERCANIDIPINE
     Dosage: 10 MILLIGRAM, BID (10 MG, 1-0-1-0)
  10. MIRTAZAPINE [Concomitant]
     Active Substance: MIRTAZAPINE
     Dosage: 30 MILLIGRAM, QD (30 MG, 0-0-0-1)
  11. METAMIZOL                          /06276701/ [Concomitant]
     Dosage: 500 MILLIGRAM (500 MG, BEDARF)
  12. MELPERONE [Concomitant]
     Active Substance: MELPERONE
     Dosage: 25 MILLIGRAM (25 MG, BEDARF )
  13. LEVOTHYROXINE SODIUM [Concomitant]
     Active Substance: LEVOTHYROXINE SODIUM
     Dosage: 100 MICROGRAM, QD (100 ?G, 1-0-0-0)
  14. BISOPROLOL [Concomitant]
     Active Substance: BISOPROLOL
     Dosage: 5 MILLIGRAM, QD (5 MG, 1-0-0-0)

REACTIONS (10)
  - Atrial fibrillation [Unknown]
  - Dyspnoea [Unknown]
  - Systemic infection [Unknown]
  - Tachycardia [Unknown]
  - Tremor [Unknown]
  - Pyrexia [Unknown]
  - Restlessness [Unknown]
  - General physical health deterioration [Unknown]
  - Pulmonary vein occlusion [Unknown]
  - Urinary tract infection [Unknown]
